FAERS Safety Report 7779313-1 (Version None)
Quarter: 2011Q3

REPORT INFORMATION
  Report Type: 
  Country: None (occurrence: None)
  Receive Date: 20110926
  Receipt Date: 20110915
  Transmission Date: 20111222
  Serious: Yes (Hospitalization)
  Sender: FDA-Public Use
  Company Number: US-RB-032278-11

PATIENT
  Age: 40 Year
  Sex: Male

DRUGS (1)
  1. SUBOXONE [Suspect]
     Indication: PRODUCT USED FOR UNKNOWN INDICATION
     Dosage: DOSING DETAILS UNKNOWN
     Route: 065
     Dates: end: 20110910

REACTIONS (8)
  - VOMITING [None]
  - TREMOR [None]
  - RETCHING [None]
  - FAECAL INCONTINENCE [None]
  - HEART RATE INCREASED [None]
  - HEADACHE [None]
  - ANXIETY [None]
  - MYOCARDIAL INFARCTION [None]
